FAERS Safety Report 5497129-6 (Version None)
Quarter: 2007Q4

REPORT INFORMATION
  Report Type: 
  Country: None (occurrence: None)
  Receive Date: 20071025
  Receipt Date: 20071015
  Transmission Date: 20080405
  Serious: Yes (Hospitalization, Other)
  Sender: FDA-Public Use
  Company Number: US-AMGEN-QUU248170

PATIENT
  Sex: Male

DRUGS (3)
  1. ENBREL [Suspect]
     Indication: DRUG USE FOR UNKNOWN INDICATION
     Route: 058
     Dates: start: 20061001
  2. IMURAN [Concomitant]
     Dates: start: 20060101
  3. HYDROXYCHLOROQUINE SULFATE [Concomitant]
     Dates: start: 20040101

REACTIONS (2)
  - POSTOPERATIVE WOUND INFECTION [None]
  - UMBILICAL HERNIA [None]
